FAERS Safety Report 25664106 (Version 1)
Quarter: 2025Q3

REPORT INFORMATION
  Report Type: Spontaneous
  Country: EU (occurrence: EU)
  Receive Date: 20250811
  Receipt Date: 20250811
  Transmission Date: 20251021
  Serious: Yes (Other)
  Sender: SANDOZ
  Company Number: None

PATIENT
  Age: 76 Year
  Sex: Male

DRUGS (6)
  1. ALFUZOSIN HYDROCHLORIDE [Suspect]
     Active Substance: ALFUZOSIN HYDROCHLORIDE
     Indication: Prostatic adenoma
     Dosage: 10 MG, QD LE MATIN
     Route: 048
     Dates: start: 20250616
  2. ALFUZOSIN HYDROCHLORIDE [Suspect]
     Active Substance: ALFUZOSIN HYDROCHLORIDE
     Dosage: 10 MG, QD LE MATIN
     Route: 048
     Dates: start: 20250616
  3. FOLIC ACID [Suspect]
     Active Substance: FOLIC ACID
     Indication: Anaemia folate deficiency
     Dosage: 5 MG, QD LE MATIN
     Route: 048
     Dates: start: 20250616
  4. MELATONIN [Suspect]
     Active Substance: MELATONIN
     Indication: Sleep disorder
     Dosage: 2 MG, QD AU COUCHER
     Route: 048
  5. PANTOPRAZOLE [Suspect]
     Active Substance: PANTOPRAZOLE
     Indication: Prophylaxis
     Route: 048
     Dates: start: 20250527, end: 20250715
  6. XARELTO [Suspect]
     Active Substance: RIVAROXABAN
     Indication: Stent placement
     Dosage: 160 MG, QD 80 MG MATIN ET SOIR
     Route: 048
     Dates: start: 20250527, end: 20250715

REACTIONS (2)
  - Cholestasis [Recovered/Resolved]
  - Thrombocytopenia [Recovered/Resolved]

NARRATIVE: CASE EVENT DATE: 20250616
